FAERS Safety Report 26064988 (Version 1)
Quarter: 2025Q4

REPORT INFORMATION
  Report Type: Spontaneous
  Country: US (occurrence: None)
  Receive Date: 20251119
  Receipt Date: 20251119
  Transmission Date: 20260118
  Serious: Yes (unspecified)
  Sender: FDA-CTU
  Company Number: None

PATIENT
  Age: 43 Year
  Sex: Female
  Weight: 81 kg

DRUGS (1)
  1. WEGOVY [Suspect]
     Active Substance: SEMAGLUTIDE
     Indication: Weight decreased
     Dates: start: 20251113, end: 20251114

REACTIONS (12)
  - Circulatory collapse [None]
  - Feeling cold [None]
  - Hyperhidrosis [None]
  - Dizziness [None]
  - Hypoaesthesia [None]
  - Frequent bowel movements [None]
  - Diarrhoea [None]
  - Abdominal pain upper [None]
  - Ileus [None]
  - Weight decreased [None]
  - Impaired work ability [None]
  - Therapy cessation [None]

NARRATIVE: CASE EVENT DATE: 20251116
